FAERS Safety Report 22308314 (Version 1)
Quarter: 2023Q2

REPORT INFORMATION
  Report Type: Spontaneous
  Country: US (occurrence: None)
  Receive Date: 20230511
  Receipt Date: 20230511
  Transmission Date: 20230721
  Serious: No
  Sender: FDA-Public Use
  Company Number: US-ROCHE-3230214

PATIENT
  Sex: Female
  Weight: 64.468 kg

DRUGS (7)
  1. OCREVUS [Suspect]
     Active Substance: OCRELIZUMAB
     Indication: Relapsing-remitting multiple sclerosis
     Route: 042
     Dates: start: 20221115
  2. OCREVUS [Suspect]
     Active Substance: OCRELIZUMAB
     Route: 042
     Dates: start: 20221130
  3. AUBAGIO [Concomitant]
     Active Substance: TERIFLUNOMIDE
  4. BETAFERON [Concomitant]
     Active Substance: INTERFERON BETA-1B
  5. COPAXONE [Concomitant]
     Active Substance: GLATIRAMER ACETATE
  6. AVONEX [Concomitant]
     Active Substance: INTERFERON BETA-1A
  7. GILENYA [Concomitant]
     Active Substance: FINGOLIMOD HYDROCHLORIDE

REACTIONS (2)
  - Inappropriate schedule of product administration [Unknown]
  - No adverse event [Unknown]

NARRATIVE: CASE EVENT DATE: 20221130
